FAERS Safety Report 24440760 (Version 2)
Quarter: 2024Q4

REPORT INFORMATION
  Report Type: Report from Study
  Country: CH (occurrence: CH)
  Receive Date: 20241016
  Receipt Date: 20241017
  Transmission Date: 20250115
  Serious: No
  Sender: ROCHE
  Company Number: CH-ROCHE-2772201

PATIENT
  Age: 2 Year
  Sex: Male
  Weight: 15.0 kg

DRUGS (30)
  1. EMICIZUMAB [Suspect]
     Active Substance: EMICIZUMAB
     Indication: Haemophilia A without inhibitors
     Route: 058
     Dates: start: 20210126, end: 20210216
  2. EMICIZUMAB [Suspect]
     Active Substance: EMICIZUMAB
     Route: 058
     Dates: start: 20210216
  3. EMICIZUMAB [Suspect]
     Active Substance: EMICIZUMAB
     Route: 058
     Dates: start: 20210302
  4. EMICIZUMAB [Suspect]
     Active Substance: EMICIZUMAB
     Route: 058
     Dates: start: 20210223
  5. EMICIZUMAB [Suspect]
     Active Substance: EMICIZUMAB
     Route: 058
     Dates: start: 20210126, end: 20210226
  6. EMICIZUMAB [Suspect]
     Active Substance: EMICIZUMAB
     Route: 058
  7. OCTANATE [Concomitant]
     Active Substance: ANTIHEMOPHILIC FACTOR HUMAN
     Indication: Factor VIII deficiency
     Route: 042
     Dates: start: 20190620, end: 20190621
  8. OCTANATE [Concomitant]
     Active Substance: ANTIHEMOPHILIC FACTOR HUMAN
     Route: 042
     Dates: start: 20190622, end: 20190624
  9. OCTANATE [Concomitant]
     Active Substance: ANTIHEMOPHILIC FACTOR HUMAN
     Route: 042
     Dates: start: 20201117, end: 20201229
  10. OCTANATE [Concomitant]
     Active Substance: ANTIHEMOPHILIC FACTOR HUMAN
     Route: 042
     Dates: start: 20200922, end: 20200922
  11. OCTANATE [Concomitant]
     Active Substance: ANTIHEMOPHILIC FACTOR HUMAN
     Route: 042
     Dates: start: 20201004, end: 20201004
  12. OCTANATE [Concomitant]
     Active Substance: ANTIHEMOPHILIC FACTOR HUMAN
     Route: 042
     Dates: start: 20201101, end: 20201101
  13. OCTANATE [Concomitant]
     Active Substance: ANTIHEMOPHILIC FACTOR HUMAN
     Route: 042
     Dates: start: 20201103, end: 20201103
  14. OCTANATE [Concomitant]
     Active Substance: ANTIHEMOPHILIC FACTOR HUMAN
     Route: 042
     Dates: start: 20201112, end: 20201112
  15. OCTANATE [Concomitant]
     Active Substance: ANTIHEMOPHILIC FACTOR HUMAN
     Route: 042
     Dates: start: 20210105, end: 20210108
  16. OCTANATE [Concomitant]
     Active Substance: ANTIHEMOPHILIC FACTOR HUMAN
     Route: 042
     Dates: start: 20210106, end: 20210108
  17. OCTANATE [Concomitant]
     Active Substance: ANTIHEMOPHILIC FACTOR HUMAN
     Route: 042
     Dates: start: 20210112, end: 20210119
  18. OCTANATE [Concomitant]
     Active Substance: ANTIHEMOPHILIC FACTOR HUMAN
     Route: 042
     Dates: start: 20210105, end: 20210105
  19. CYKLOKAPRON [Concomitant]
     Active Substance: TRANEXAMIC ACID
     Indication: Factor VIII deficiency
     Route: 048
     Dates: start: 20201004, end: 20201004
  20. CYKLOKAPRON [Concomitant]
     Active Substance: TRANEXAMIC ACID
     Route: 048
     Dates: start: 20201005, end: 20201010
  21. CYKLOKAPRON [Concomitant]
     Active Substance: TRANEXAMIC ACID
     Route: 048
     Dates: start: 20201101, end: 20201107
  22. CYKLOKAPRON [Concomitant]
     Active Substance: TRANEXAMIC ACID
     Route: 048
     Dates: start: 20210105, end: 20210107
  23. TANNO HERMAL [Concomitant]
     Indication: Varicella
     Route: 003
     Dates: start: 20220316, end: 20220317
  24. DAFALGAN [Concomitant]
     Active Substance: ACETAMINOPHEN
     Indication: Varicella
     Route: 048
     Dates: start: 20220317, end: 20220317
  25. ACETAMINOPHEN [Concomitant]
     Active Substance: ACETAMINOPHEN
     Indication: Upper respiratory tract infection
     Route: 048
     Dates: start: 20221024, end: 20221026
  26. ACETAMINOPHEN [Concomitant]
     Active Substance: ACETAMINOPHEN
     Indication: Viral infection
     Route: 048
     Dates: start: 20221027, end: 20221028
  27. ACETAMINOPHEN [Concomitant]
     Active Substance: ACETAMINOPHEN
     Route: 048
     Dates: start: 20230202, end: 20230203
  28. EMLA [Concomitant]
     Active Substance: LIDOCAINE\PRILOCAINE
     Indication: Prophylaxis
     Route: 061
     Dates: start: 20210106, end: 20210126
  29. EMLA [Concomitant]
     Active Substance: LIDOCAINE\PRILOCAINE
     Route: 061
     Dates: start: 20210126
  30. POXCLIN COOLMOUSSE [Concomitant]
     Indication: Varicella
     Route: 003
     Dates: start: 20220314, end: 20220317

REACTIONS (9)
  - Pyrexia [Recovered/Resolved]
  - Oropharyngeal pain [Recovered/Resolved]
  - Head injury [Recovered/Resolved]
  - Hand-foot-and-mouth disease [Recovered/Resolved]
  - Gait disturbance [Recovered/Resolved]
  - Fall [Unknown]
  - Oral pain [Recovered/Resolved]
  - Varicella [Recovered/Resolved]
  - Nasal injury [Recovered/Resolved]

NARRATIVE: CASE EVENT DATE: 20210126
